FAERS Safety Report 13759440 (Version 1)
Quarter: 2017Q3

REPORT INFORMATION
  Report Type: Spontaneous
  Country: DE (occurrence: AT)
  Receive Date: 20170717
  Receipt Date: 20170717
  Transmission Date: 20171127
  Serious: Yes (Other)
  Sender: FDA-Public Use
  Company Number: DE-BRISTOL-MYERS SQUIBB COMPANY-BMS-2017-061378

PATIENT
  Sex: Female

DRUGS (1)
  1. ELIQUIS [Suspect]
     Active Substance: APIXABAN
     Indication: CEREBROVASCULAR ACCIDENT PROPHYLAXIS
     Dosage: 2.5 MG, QD
     Route: 048

REACTIONS (8)
  - Nausea [Unknown]
  - Lymphoma [Unknown]
  - Blood pressure decreased [Unknown]
  - Muscle spasms [Unknown]
  - Headache [Unknown]
  - Tachycardia [Unknown]
  - Off label use [Unknown]
  - Gastric operation [Unknown]
